FAERS Safety Report 10707357 (Version 1)
Quarter: 2015Q1

REPORT INFORMATION
  Report Type: Spontaneous
  Country: US (occurrence: None)
  Receive Date: 20150112
  Receipt Date: 20150112
  Transmission Date: 20150721
  Serious: Yes (Hospitalization)
  Sender: FDA-Public Use
  Company Number: None

PATIENT
  Age: 37 Year
  Sex: Female
  Weight: 45.02 kg

DRUGS (29)
  1. SYNTHROID [Concomitant]
     Active Substance: LEVOTHYROXINE SODIUM
  2. VITAMIN B [Concomitant]
     Active Substance: VITAMIN B
  3. BACLOFEN. [Concomitant]
     Active Substance: BACLOFEN
  4. LIDOCAINE. [Concomitant]
     Active Substance: LIDOCAINE
  5. TRAMADOL [Concomitant]
     Active Substance: TRAMADOL
  6. VITAMIN E [Concomitant]
     Active Substance: .ALPHA.-TOCOPHEROL
  7. CETUXIMAB [Suspect]
     Active Substance: CETUXIMAB
     Indication: SQUAMOUS CELL CARCINOMA
     Route: 042
     Dates: start: 20140911, end: 20141223
  8. PILOCARPINE [Concomitant]
     Active Substance: PILOCARPINE
  9. ZITHROMAX [Concomitant]
     Active Substance: AZITHROMYCIN DIHYDRATE
  10. CLINDAMAX [Concomitant]
     Active Substance: CLINDAMYCIN PHOSPHATE
  11. FENTANYL. [Concomitant]
     Active Substance: FENTANYL
  12. GABAPENTIN. [Concomitant]
     Active Substance: GABAPENTIN
  13. LEVOFLOXACIN. [Concomitant]
     Active Substance: LEVOFLOXACIN
  14. NIACIN. [Concomitant]
     Active Substance: NIACIN
  15. FLUCONAZOLE. [Concomitant]
     Active Substance: FLUCONAZOLE
  16. HYDROCONDONE-ACETAMINOPHEN [Concomitant]
  17. TRIAMCINOLONE ACETONIDE. [Concomitant]
     Active Substance: TRIAMCINOLONE ACETONIDE
  18. PALBOCICLIB [Suspect]
     Active Substance: PALBOCICLIB
     Indication: SQUAMOUS CELL CARCINOMA
     Route: 048
     Dates: start: 20140911, end: 20141230
  19. SENNA [Concomitant]
     Active Substance: SENNA LEAF\SENNOSIDES\SENNOSIDES A AND B
  20. DULOXETINE HCL [Concomitant]
     Active Substance: DULOXETINE HYDROCHLORIDE
  21. MINOCYCLINE [Concomitant]
     Active Substance: MINOCYCLINE\MINOCYCLINE HYDROCHLORIDE
  22. MULTIVITAMIN [Concomitant]
     Active Substance: VITAMINS
  23. BENZONATATE. [Concomitant]
     Active Substance: BENZONATATE
  24. MAGIC MAUTHWASH [Concomitant]
  25. MIRTAZAPINE. [Concomitant]
     Active Substance: MIRTAZAPINE
  26. MUCINEX [Concomitant]
     Active Substance: GUAIFENESIN
  27. NYSTATIN. [Concomitant]
     Active Substance: NYSTATIN
  28. SALSALATE. [Concomitant]
     Active Substance: SALSALATE
  29. VITAMIN C [Concomitant]
     Active Substance: ASCORBIC ACID

REACTIONS (5)
  - Tumour pain [None]
  - Pneumonia [None]
  - Malignant neoplasm progression [None]
  - Lethargy [None]
  - Squamous cell carcinoma [None]

NARRATIVE: CASE EVENT DATE: 20150106
